FAERS Safety Report 10263156 (Version 2)
Quarter: 2014Q2

REPORT INFORMATION
  Report Type: Report from Study
  Country: US (occurrence: US)
  Receive Date: 20140626
  Receipt Date: 20140626
  Transmission Date: 20141212
  Serious: Yes (Other)
  Sender: FDA-Public Use
  Company Number: US-MYLANLABS-2014S1003639

PATIENT
  Age: 21 Year
  Sex: Male

DRUGS (10)
  1. CLOZAPINE TABLETS [Suspect]
     Route: 048
     Dates: start: 20140115, end: 20140217
  2. CLOZAPINE TABLETS [Suspect]
     Route: 048
     Dates: start: 20140303, end: 20140305
  3. DEPAKOTE [Concomitant]
     Dosage: 3- 250MG QAM AND 2- 500MG HS
     Route: 048
  4. LEVETIRACETAM [Concomitant]
     Route: 048
  5. LEVOTHYROXINE [Concomitant]
     Route: 048
  6. METFORMIN [Concomitant]
     Route: 048
  7. SEROQUEL [Concomitant]
     Route: 048
  8. MULTIVITAMINES WITH IRON /02170101/ [Concomitant]
     Route: 048
  9. VIMPAT [Concomitant]
     Route: 048
  10. VITAMIN C [Concomitant]
     Route: 048

REACTIONS (1)
  - Granulocytopenia [Not Recovered/Not Resolved]
